FAERS Safety Report 15405418 (Version 1)
Quarter: 2018Q3

REPORT INFORMATION
  Report Type: Spontaneous
  Country: US (occurrence: US)
  Receive Date: 20180920
  Receipt Date: 20180920
  Transmission Date: 20181010
  Serious: Yes (Other)
  Sender: FDA-Public Use
  Company Number: US-HTU-2017US017001

PATIENT
  Sex: Male

DRUGS (3)
  1. CLOBETASOL EMOLLIENT [Concomitant]
  2. BENADRYL [Concomitant]
     Active Substance: DIPHENHYDRAMINE HYDROCHLORIDE
  3. VALCHLOR [Suspect]
     Active Substance: MECHLORETHAMINE
     Indication: MYCOSIS FUNGOIDES
     Dosage: UNK UNK, UNKNOWN
     Route: 061
     Dates: start: 20171101

REACTIONS (3)
  - Pruritus [Unknown]
  - Burning sensation [Unknown]
  - Disease progression [Unknown]
